FAERS Safety Report 14192384 (Version 1)
Quarter: 2017Q4

REPORT INFORMATION
  Report Type: Other
  Country: CA (occurrence: CA)
  Receive Date: 20171116
  Receipt Date: 20171116
  Transmission Date: 20180321
  Serious: No
  Sender: FDA-Public Use
  Company Number: CA-LUPIN PHARMACEUTICALS INC.-2017-02924

PATIENT
  Age: 33 Year
  Sex: Female

DRUGS (1)
  1. NORETHINDRONE. [Suspect]
     Active Substance: NORETHINDRONE
     Indication: PRODUCT USED FOR UNKNOWN INDICATION
     Dosage: 0.35 MG, (1 EVERY 1 DAY(S))
     Route: 065

REACTIONS (3)
  - Erythema nodosum [Unknown]
  - Mass [Unknown]
  - Product substitution issue [Unknown]
